FAERS Safety Report 26204477 (Version 2)
Quarter: 2025Q4

REPORT INFORMATION
  Report Type: Spontaneous
  Country: US (occurrence: US)
  Receive Date: 20251226
  Receipt Date: 20251226
  Transmission Date: 20260118
  Serious: Yes (Other)
  Sender: ROCHE
  Company Number: US-ROCHE-10000468651

PATIENT
  Sex: Female

DRUGS (4)
  1. XOLAIR [Suspect]
     Active Substance: OMALIZUMAB
     Indication: Ankylosing spondylitis
     Route: 058
     Dates: start: 202406
  2. RINVOQ [Concomitant]
     Active Substance: UPADACITINIB
  3. ajovy PF [Concomitant]
  4. COSENTYX [Concomitant]
     Active Substance: SECUKINUMAB

REACTIONS (2)
  - Polymyositis [Unknown]
  - Off label use [Unknown]
